FAERS Safety Report 6373421-8 (Version None)
Quarter: 2009Q3

REPORT INFORMATION
  Report Type: 
  Country: None (occurrence: None)
  Receive Date: 20090924
  Receipt Date: 20090707
  Transmission Date: 20100115
  Serious: Yes (Other)
  Sender: FDA-Public Use
  Company Number: US-ASTRAZENECA-2009UW06887

PATIENT
  Age: 17 Year
  Sex: Male
  Weight: 68 kg

DRUGS (5)
  1. SEROQUEL XR [Suspect]
     Indication: PSYCHOTIC DISORDER
     Route: 048
     Dates: start: 20080101, end: 20090301
  2. SEROQUEL XR [Suspect]
     Indication: SLEEP DISORDER
     Route: 048
     Dates: start: 20080101, end: 20090301
  3. SEROQUEL XR [Suspect]
     Route: 048
     Dates: start: 20080101
  4. SEROQUEL XR [Suspect]
     Route: 048
     Dates: start: 20080101
  5. ADDERAL XR [Concomitant]
     Dates: end: 20081201

REACTIONS (2)
  - AGITATION [None]
  - ELECTROCARDIOGRAM QT PROLONGED [None]
